FAERS Safety Report 24667034 (Version 8)
Quarter: 2025Q1

REPORT INFORMATION
  Report Type: Report from Study
  Country: CA (occurrence: CA)
  Receive Date: 20241126
  Receipt Date: 20250325
  Transmission Date: 20250408
  Serious: Yes (Hospitalization, Other)
  Sender: BAUSCH AND LOMB
  Company Number: CA-BAUSCH-BL-2024-014497

PATIENT
  Age: 87 Year
  Sex: Male
  Weight: 57.204 kg

DRUGS (5)
  1. SILIQ [Suspect]
     Active Substance: BRODALUMAB
     Indication: Psoriasis
     Dosage: 210 MG/1.5 ML, WEEKLY (WEEK 0,1,2)
     Route: 058
     Dates: start: 20210426, end: 20210510
  2. SILIQ [Suspect]
     Active Substance: BRODALUMAB
     Dosage: 210MG/1.5ML (Q2 WEEKS)
     Route: 058
     Dates: start: 202105, end: 20240912
  3. SILIQ [Suspect]
     Active Substance: BRODALUMAB
     Dosage: 210MG/1.5ML (Q2 WEEKS)
     Route: 058
     Dates: start: 20241002
  4. IRBESARTAN [Concomitant]
     Active Substance: IRBESARTAN
     Indication: Product used for unknown indication
     Route: 048
  5. RISPERDAL [Concomitant]
     Active Substance: RISPERIDONE
     Indication: Product used for unknown indication
     Dates: start: 2024

REACTIONS (6)
  - Confusional state [Recovered/Resolved]
  - Delusion [Recovered/Resolved]
  - SARS-CoV-2 test positive [Recovered/Resolved]
  - Product storage error [Unknown]
  - Inappropriate schedule of product administration [Unknown]
  - Product availability issue [Unknown]

NARRATIVE: CASE EVENT DATE: 20240101
